FAERS Safety Report 4745113-X (Version None)
Quarter: 2005Q3

REPORT INFORMATION
  Report Type: 
  Country: None (occurrence: None)
  Receive Date: 20050815
  Receipt Date: 20050228
  Transmission Date: 20060218
  Serious: Yes (Other)
  Sender: FDA-Public Use
  Company Number: JP-ROCHE-409093

PATIENT
  Age: 83 Year
  Sex: Female

DRUGS (1)
  1. TAMIFLU [Suspect]
     Route: 048
     Dates: start: 20050220, end: 20050221

REACTIONS (3)
  - HAEMATEMESIS [None]
  - MELAENA [None]
  - VOMITING [None]
